FAERS Safety Report 8979111 (Version 1)
Quarter: 2012Q4

REPORT INFORMATION
  Report Type: 
  Country: BR (occurrence: BR)
  Receive Date: 20121221
  Receipt Date: 20121221
  Transmission Date: 20130627
  Serious: Yes (Hospitalization, Other)
  Sender: FDA-Public Use
  Company Number: BR-PFIZER INC-2012321909

PATIENT
  Age: 54 Year
  Sex: Male
  Weight: 76.5 kg

DRUGS (2)
  1. LIPITOR [Suspect]
     Dosage: UNK
     Route: 048
     Dates: start: 20120518
  2. MAREVAN [Concomitant]
     Dosage: UNK

REACTIONS (2)
  - Surgery [Unknown]
  - Chest pain [Unknown]
